FAERS Safety Report 19382242 (Version 2)
Quarter: 2021Q2

REPORT INFORMATION
  Report Type: Spontaneous
  Country: JP (occurrence: JP)
  Receive Date: 20210607
  Receipt Date: 20210610
  Transmission Date: 20210717
  Serious: Yes (Hospitalization)
  Sender: FDA-Public Use
  Company Number: JP-NIPPON SHINYAKU-NIP-2021-000022

PATIENT

DRUGS (13)
  1. E KEPPRA [Concomitant]
     Active Substance: LEVETIRACETAM
     Dosage: 200 MG
     Route: 065
     Dates: start: 20201210, end: 20210114
  2. CEFAZOLIN NA [Concomitant]
     Active Substance: CEFAZOLIN SODIUM
     Indication: DEVICE RELATED SEPSIS
     Dosage: 1000 MG
     Route: 065
     Dates: start: 20210204, end: 20210212
  3. CEFTRIAXONE NA [Concomitant]
     Active Substance: CEFTRIAXONE
     Indication: DEVICE RELATED SEPSIS
     Dosage: 1 GRAM
     Route: 065
     Dates: start: 20210128, end: 20210128
  4. ENALAPRIL MALEATE. [Concomitant]
     Active Substance: ENALAPRIL MALEATE
     Indication: PROPHYLAXIS
     Dosage: 2.5 MG
     Route: 065
  5. CEFAZOLIN NA [Concomitant]
     Active Substance: CEFAZOLIN SODIUM
     Dosage: 2250 MG
     Route: 065
     Dates: start: 20210416, end: 20210430
  6. VILTEPSO [Suspect]
     Active Substance: VILTOLARSEN
     Indication: DUCHENNE MUSCULAR DYSTROPHY
     Dosage: 80 MG/KG, QWK
     Route: 041
     Dates: start: 20201119
  7. PREDNISOLONE. [Concomitant]
     Active Substance: PREDNISOLONE
     Indication: DUCHENNE MUSCULAR DYSTROPHY
     Dosage: 9 MG
     Route: 065
  8. E KEPPRA [Concomitant]
     Active Substance: LEVETIRACETAM
     Indication: PRODUCT USED FOR UNKNOWN INDICATION
     Dosage: 400 MG
     Route: 065
     Dates: end: 20201209
  9. CEFTRIAXONE NA [Concomitant]
     Active Substance: CEFTRIAXONE
     Dosage: 1 GRAM
     Route: 065
     Dates: start: 20210415, end: 20210415
  10. CEFMETAZOLE NA [Concomitant]
     Active Substance: CEFMETAZOLE
     Indication: DEVICE RELATED SEPSIS
     Dosage: 2.4 GRAM
     Route: 065
     Dates: start: 20210131, end: 20210202
  11. VIMPAT [Concomitant]
     Active Substance: LACOSAMIDE
     Indication: PRODUCT USED FOR UNKNOWN INDICATION
     Dosage: 240 MG
     Route: 065
  12. VANCOMYCIN [Concomitant]
     Active Substance: VANCOMYCIN
     Indication: DEVICE RELATED SEPSIS
     Dosage: 1 GRAM
     Dates: start: 20210129, end: 20210131
  13. ABILIFY [Concomitant]
     Active Substance: ARIPIPRAZOLE
     Indication: PRODUCT USED FOR UNKNOWN INDICATION
     Dosage: 3 MG
     Route: 065

REACTIONS (3)
  - Beta 2 microglobulin urine increased [Unknown]
  - Device related sepsis [Recovered/Resolved]
  - Pyrexia [Recovering/Resolving]

NARRATIVE: CASE EVENT DATE: 202101
